FAERS Safety Report 15187289 (Version 1)
Quarter: 2018Q3

REPORT INFORMATION
  Report Type: Report from Study
  Country: US (occurrence: US)
  Receive Date: 20180723
  Receipt Date: 20180723
  Transmission Date: 20181010
  Serious: No
  Sender: FDA-Public Use
  Company Number: US-EXELIXIS-CABO-18012371

PATIENT
  Sex: Female

DRUGS (11)
  1. COMETRIQ [Suspect]
     Active Substance: CABOZANTINIB S-MALATE
     Dosage: 40 MG QMWF, 20 MG QT,TH, SA, SUN
     Route: 048
  2. MAPAP [Concomitant]
     Active Substance: ACETAMINOPHEN
  3. LOPERAMIDE [Concomitant]
     Active Substance: LOPERAMIDE
  4. LEVOTHYROXINE SODIUM. [Concomitant]
     Active Substance: LEVOTHYROXINE SODIUM
  5. VITAMIN D3 [Concomitant]
     Active Substance: CHOLECALCIFEROL
  6. POTASSIUM CHLORIDE. [Concomitant]
     Active Substance: POTASSIUM CHLORIDE
  7. VITAMIN D [Concomitant]
     Active Substance: CHOLECALCIFEROL
  8. HYDROCORTISONE. [Concomitant]
     Active Substance: HYDROCORTISONE
  9. LIDOCAINE. [Concomitant]
     Active Substance: LIDOCAINE
  10. COMETRIQ [Suspect]
     Active Substance: CABOZANTINIB S-MALATE
     Indication: THYROID CANCER
     Dosage: 40 MG, QD
     Route: 048
     Dates: start: 20170816
  11. CALCIUM ACETATE. [Concomitant]
     Active Substance: CALCIUM ACETATE

REACTIONS (1)
  - Neoplasm progression [Not Recovered/Not Resolved]
